FAERS Safety Report 10557949 (Version 1)
Quarter: 2014Q4

REPORT INFORMATION
  Report Type: Spontaneous
  Country: DE (occurrence: None)
  Receive Date: 20141029
  Receipt Date: 20141029
  Transmission Date: 20150529
  Serious: Yes (Hospitalization)
  Sender: FDA-Public Use
  Company Number: FK201404462

PATIENT
  Age: 75 Year
  Sex: Male

DRUGS (1)
  1. OXALIPLATIN (MANUFACTURER UNKNOWN) (OXALIPLATIN) (OXALIPLATIN) [Suspect]
     Active Substance: OXALIPLATIN
     Indication: RECTAL ADENOCARCINOMA
     Dosage: CYCLICAL

REACTIONS (8)
  - Acute kidney injury [None]
  - Glomerulonephritis proliferative [None]
  - Hypersensitivity vasculitis [None]
  - Toxicity to various agents [None]
  - Hypochromic anaemia [None]
  - Metastases to lung [None]
  - Rectal adenocarcinoma [None]
  - Adenocarcinoma [None]
